FAERS Safety Report 4876244-1 (Version None)
Quarter: 2006Q1

REPORT INFORMATION
  Report Type: 
  Country: None (occurrence: None)
  Receive Date: 20060106
  Receipt Date: 20051227
  Transmission Date: 20060701
  Serious: No
  Sender: FDA-Public Use
  Company Number: RS005696-D

PATIENT
  Age: 48 Year
  Sex: Female
  Weight: 65 kg

DRUGS (3)
  1. RABEPRAZOLE SODIUM [Suspect]
     Dosage: 40 MG, ORAL
     Route: 048
  2. DICLOFENAC (DICLOFENAC) [Suspect]
  3. BACTRIM DS [Concomitant]

REACTIONS (2)
  - ALCOHOLISM [None]
  - SUICIDAL IDEATION [None]
